FAERS Safety Report 10288149 (Version 4)
Quarter: 2014Q3

REPORT INFORMATION
  Report Type: Spontaneous
  Country: US (occurrence: US)
  Receive Date: 20140709
  Receipt Date: 20140930
  Transmission Date: 20150326
  Serious: Yes (Other)
  Sender: FDA-Public Use
  Company Number: US-AMGEN-USASP2014050456

PATIENT
  Age: 45 Year
  Sex: Male
  Weight: 121.9 kg

DRUGS (3)
  1. DIPHENHYDRAMINE HCL [Concomitant]
     Active Substance: DIPHENHYDRAMINE HYDROCHLORIDE
     Dosage: 50
     Dates: start: 20140604
  2. RITUXIMAB [Concomitant]
     Active Substance: RITUXIMAB
     Dosage: 881, THEN 878
     Dates: start: 20140604
  3. NPLATE [Suspect]
     Active Substance: ROMIPLOSTIM
     Indication: IMMUNE THROMBOCYTOPENIC PURPURA
     Dosage: 575 MUG, QWK
     Route: 058
     Dates: start: 20140509

REACTIONS (2)
  - Therapeutic response decreased [Not Recovered/Not Resolved]
  - Platelet count abnormal [Not Recovered/Not Resolved]
